FAERS Safety Report 7681889-X (Version None)
Quarter: 2011Q3

REPORT INFORMATION
  Report Type: 
  Country: None (occurrence: None)
  Receive Date: 20110815
  Receipt Date: 20110808
  Transmission Date: 20111222
  Serious: Yes (Other)
  Sender: FDA-Public Use
  Company Number: US-BIOGENIDEC-2010BI044524

PATIENT
  Age: 50 Year
  Sex: Female
  Weight: 86 kg

DRUGS (6)
  1. TYSABRI [Suspect]
     Indication: MULTIPLE SCLEROSIS
     Route: 042
     Dates: start: 20100219
  2. ULTRAM [Concomitant]
     Indication: ARTHRALGIA
  3. KLONOPIN [Concomitant]
     Indication: DYSKINESIA
  4. ULTRAM SR [Concomitant]
     Indication: ARTHRALGIA
  5. VINPAT [Concomitant]
     Indication: DYSKINESIA
  6. VINPAT [Concomitant]
     Indication: CONVULSION

REACTIONS (6)
  - ARTHRALGIA [None]
  - MEMORY IMPAIRMENT [None]
  - VAGINAL INFECTION [None]
  - DENTAL CARIES [None]
  - MYOCLONIC EPILEPSY [None]
  - DISORIENTATION [None]
